FAERS Safety Report 18952629 (Version 2)
Quarter: 2021Q3

REPORT INFORMATION
  Report Type: Other
  Country: TR (occurrence: TR)
  Receive Date: 20210301
  Receipt Date: 20210924
  Transmission Date: 20211014
  Serious: Yes (Other)
  Sender: FDA-Public Use
  Company Number: TR-ROCHE-2775722

PATIENT

DRUGS (3)
  1. ACETAMINOPHEN. [Concomitant]
     Active Substance: ACETAMINOPHEN
  2. RITUXIMAB. [Suspect]
     Active Substance: RITUXIMAB
     Indication: NEPHROTIC SYNDROME
     Dosage: PATIENT^S RECEIVED SINGLE DOSE OR 2?4 DOSES WEEKLY OR BIWEEKLY
     Route: 042
  3. DIPHENHYDRAMINE. [Concomitant]
     Active Substance: DIPHENHYDRAMINE

REACTIONS (11)
  - Nausea [Unknown]
  - Vomiting [Unknown]
  - Myocarditis [Unknown]
  - Cough [Unknown]
  - Respiratory distress [Unknown]
  - Pyrexia [Unknown]
  - Erythema [Unknown]
  - Encephalopathy [Unknown]
  - Hypotension [Unknown]
  - Rash [Unknown]
  - Hypogammaglobulinaemia [Unknown]
